FAERS Safety Report 24642997 (Version 3)
Quarter: 2024Q4

REPORT INFORMATION
  Report Type: Report from Study
  Country: ZA (occurrence: ZA)
  Receive Date: 20241120
  Receipt Date: 20241203
  Transmission Date: 20250114
  Serious: Yes (Other)
  Sender: NOVARTIS
  Company Number: ZA-002147023-NVSC2024ZA221497

PATIENT
  Age: 71 Year
  Sex: Male

DRUGS (1)
  1. INCLISIRAN [Suspect]
     Active Substance: INCLISIRAN
     Indication: Primary hypercholesterolaemia
     Dosage: 284 MG, OTHER, MONTH 0, MONTH 3, MONTH 6,AND THEREAFTER EVERY 6MONTHS
     Route: 058
     Dates: start: 20241108

REACTIONS (6)
  - Influenza like illness [Unknown]
  - Pain [Unknown]
  - Myalgia [Unknown]
  - Malaise [Unknown]
  - Dyspnoea [Unknown]
  - Ill-defined disorder [Unknown]

NARRATIVE: CASE EVENT DATE: 20241108
